FAERS Safety Report 9798776 (Version 2)
Quarter: 2014Q1

REPORT INFORMATION
  Report Type: Spontaneous
  Country: US (occurrence: US)
  Receive Date: 20140106
  Receipt Date: 20140106
  Transmission Date: 20141002
  Serious: No
  Sender: FDA-Public Use
  Company Number: US-GILEAD-2010-0030036

PATIENT
  Age: 53 Year
  Sex: Female

DRUGS (12)
  1. LETAIRIS [Suspect]
     Indication: PULMONARY ARTERIAL HYPERTENSION
     Route: 048
  2. HUMULIN [Concomitant]
  3. CARVEDILOL [Concomitant]
  4. FAMOTIDINE [Concomitant]
  5. LISINOPRIL [Concomitant]
  6. ADVAIR [Concomitant]
  7. SPIRONOLACTONE [Concomitant]
  8. AMITRIPTYLIN [Concomitant]
  9. CRESTOR [Concomitant]
  10. RESTORIL [Concomitant]
  11. PLAVIX [Concomitant]
  12. ADCIRCA [Concomitant]

REACTIONS (1)
  - Local swelling [Unknown]
